FAERS Safety Report 5824140-5 (Version None)
Quarter: 2008Q3

REPORT INFORMATION
  Report Type: 
  Country: None (occurrence: None)
  Receive Date: 20080728
  Receipt Date: 20080717
  Transmission Date: 20090109
  Serious: Yes (Other)
  Sender: FDA-Public Use
  Company Number: US-ROCHE-553506

PATIENT
  Sex: Female

DRUGS (10)
  1. PEG-INTERFERON A-2A (RO 25-8310) [Suspect]
     Indication: HEPATITIS C
     Dosage: FORM: PRE-FILLED SYRINGE (PFS)
     Route: 065
     Dates: start: 20080229, end: 20080609
  2. RIBAVIRIN [Suspect]
     Indication: HEPATITIS C
     Dosage: IN DIVIDED DOSES, AT 11AM AND 6PM PATIENT IN WEEK 14
     Route: 065
     Dates: start: 20080229, end: 20080609
  3. BENTYL [Concomitant]
     Dosage: AS NEEDED
  4. XANAX [Concomitant]
  5. GEODON [Concomitant]
  6. PROVIGIL [Concomitant]
  7. PREMPRO [Concomitant]
  8. METHADONE HCL [Concomitant]
  9. ZYRTEC [Concomitant]
     Dosage: DOSE: AS NEEDED (PRN)
  10. OXYCONTIN [Concomitant]

REACTIONS (2)
  - GLAUCOMA [None]
  - HYPERTENSION [None]
